FAERS Safety Report 11658952 (Version 3)
Quarter: 2015Q4

REPORT INFORMATION
  Report Type: Spontaneous
  Country: US (occurrence: US)
  Receive Date: 20151026
  Receipt Date: 20151203
  Transmission Date: 20160304
  Serious: Yes (Other)
  Sender: FDA-Public Use
  Company Number: CHPA2015US012118

PATIENT
  Age: 70 Year
  Sex: Male

DRUGS (3)
  1. EXCEDRIN MILD HEADACHE CAPLETS [Suspect]
     Active Substance: ACETAMINOPHEN\CAFFEINE
     Indication: HEADACHE
     Dosage: 3 DF, UNK
     Route: 065
     Dates: end: 201510
  2. EXCEDRIN EXTRA STRENGTH [Suspect]
     Active Substance: ACETAMINOPHEN\ASPIRIN\CAFFEINE
     Indication: HEADACHE
     Dosage: 3 DF, UNK
     Route: 048
  3. EXCEDRIN MIGRAINE [Suspect]
     Active Substance: ACETAMINOPHEN\ASPIRIN\CAFFEINE
     Indication: HEADACHE
     Dosage: 3 DF, UNK
     Route: 065

REACTIONS (5)
  - Sleep disorder [Unknown]
  - Incorrect dose administered [Unknown]
  - Drug ineffective [Unknown]
  - Diabetes mellitus [Unknown]
  - Product use issue [Unknown]
